FAERS Safety Report 11937326 (Version 1)
Quarter: 2016Q1

REPORT INFORMATION
  Report Type: Spontaneous
  Country: US (occurrence: US)
  Receive Date: 20160121
  Receipt Date: 20160121
  Transmission Date: 20160526
  Serious: No
  Sender: FDA-Public Use
  Company Number: US-PFIZER INC-2015466239

PATIENT
  Age: 71 Year
  Sex: Female

DRUGS (3)
  1. DURAVENT [Suspect]
     Active Substance: CHLORPHENIRAMINE MALEATE\METHSCOPOLAMINE NITRATE\PHENYLEPHRINE HYDROCHLORIDE
     Dosage: UNK
  2. CLINORIL [Suspect]
     Active Substance: SULINDAC
     Dosage: UNK
  3. SILVER SULFADIAZENE [Suspect]
     Active Substance: SILVER SULFADIAZINE
     Dosage: UNK

REACTIONS (1)
  - Headache [Unknown]
